FAERS Safety Report 9355153 (Version 4)
Quarter: 2016Q4

REPORT INFORMATION
  Report Type: Report from Study
  Country: CN (occurrence: CN)
  Receive Date: 20130619
  Receipt Date: 20161025
  Transmission Date: 20170207
  Serious: Yes (Congenital Anomaly, Other)
  Sender: FDA-Public Use
  Company Number: PHHY2013CN061018

PATIENT
  Sex: Male
  Weight: 2.8 kg

DRUGS (4)
  1. SEBIVO [Suspect]
     Active Substance: TELBIVUDINE
     Indication: FOETAL EXPOSURE DURING PREGNANCY
  2. SEBIVO [Suspect]
     Active Substance: TELBIVUDINE
     Indication: CHRONIC HEPATITIS B
     Dosage: (MATERNAL DOSE 600 MG, QD)
     Route: 064
  3. BARACLUDE [Suspect]
     Active Substance: ENTECAVIR
     Indication: PRODUCT USED FOR UNKNOWN INDICATION
     Dosage: (MATERNAL DOSE 0.5 DF, QD)
     Route: 064
  4. ENTECAVIR. [Concomitant]
     Active Substance: ENTECAVIR
     Indication: CHRONIC HEPATITIS B
     Route: 064

REACTIONS (4)
  - Pyloric stenosis [Recovered/Resolved]
  - Premature baby [Recovered/Resolved]
  - Foetal exposure during pregnancy [Unknown]
  - Vomiting [Unknown]
